FAERS Safety Report 5742613-0 (Version None)
Quarter: 2008Q2

REPORT INFORMATION
  Report Type: 
  Country: None (occurrence: None)
  Receive Date: 20080519
  Receipt Date: 20080506
  Transmission Date: 20081010
  Serious: Yes (Hospitalization)
  Sender: FDA-Public Use
  Company Number: ES-AMGEN-US279860

PATIENT
  Age: 48 Year
  Sex: Female

DRUGS (2)
  1. ENBREL [Suspect]
     Indication: SWEAT GLAND INFECTION
     Route: 058
  2. PREDNISONE TAB [Suspect]
     Indication: SWEAT GLAND INFECTION
     Route: 048

REACTIONS (5)
  - CANDIDIASIS [None]
  - CATHETER SEPSIS [None]
  - CATHETER SITE PHLEBITIS [None]
  - CHORIORETINITIS [None]
  - RETINAL HAEMORRHAGE [None]
